FAERS Safety Report 7290029-0 (Version None)
Quarter: 2011Q1

REPORT INFORMATION
  Report Type: 
  Country: None (occurrence: None)
  Receive Date: 20110209
  Receipt Date: 20110209
  Transmission Date: 20110831
  Serious: Yes (Other)
  Sender: FDA-Public Use
  Company Number: None

PATIENT
  Age: 54 Year
  Sex: Male
  Weight: 81.6475 kg

DRUGS (2)
  1. CRESTOR [Suspect]
     Indication: BLOOD TRIGLYCERIDES INCREASED
     Dosage: 10 DAILY PO
     Route: 048
     Dates: start: 20090315, end: 20101101
  2. CRESTOR [Suspect]
     Indication: BLOOD CHOLESTEROL
     Dosage: 5 DAILY PO
     Route: 048
     Dates: start: 20081215, end: 20090315

REACTIONS (6)
  - MUSCULOSKELETAL PAIN [None]
  - BLOOD PRESSURE DECREASED [None]
  - DIZZINESS [None]
  - DISCOMFORT [None]
  - PAIN IN EXTREMITY [None]
  - PARAESTHESIA [None]
